FAERS Safety Report 7981998-1 (Version None)
Quarter: 2011Q4

REPORT INFORMATION
  Report Type: 
  Country: None (occurrence: None)
  Receive Date: 20111213
  Receipt Date: 20111202
  Transmission Date: 20120403
  Serious: Yes (Hospitalization, Other)
  Sender: FDA-Public Use
  Company Number: ADR-2011-11717

PATIENT
  Sex: Male

DRUGS (1)
  1. BACLOFEN [Suspect]
     Dosage: 50MCG/DAY

REACTIONS (2)
  - MOVEMENT DISORDER [None]
  - INFUSION SITE ERYTHEMA [None]
